APPROVED DRUG PRODUCT: RANOLAZINE
Active Ingredient: RANOLAZINE
Strength: 500MG
Dosage Form/Route: TABLET, EXTENDED RELEASE;ORAL
Application: A210407 | Product #001
Applicant: TORRENT PHARMACEUTICALS LTD
Approved: Feb 4, 2025 | RLD: No | RS: No | Type: DISCN